FAERS Safety Report 14693051 (Version 1)
Quarter: 2018Q1

REPORT INFORMATION
  Report Type: Spontaneous
  Country: US (occurrence: US)
  Receive Date: 20180329
  Receipt Date: 20180329
  Transmission Date: 20180509
  Serious: Yes (Other)
  Sender: FDA-Public Use
  Company Number: US-ASTRAZENECA-2018SE36987

PATIENT

DRUGS (2)
  1. DURVALUMAB. [Suspect]
     Active Substance: DURVALUMAB
     Indication: KERATINISING SQUAMOUS CELL CARCINOMA OF NASOPHARYNX
     Route: 042
  2. NIVOLUMAB [Suspect]
     Active Substance: NIVOLUMAB
     Indication: KERATINISING SQUAMOUS CELL CARCINOMA OF NASOPHARYNX
     Route: 065

REACTIONS (1)
  - Myasthenia gravis [Unknown]
